FAERS Safety Report 8971160 (Version 1)
Quarter: 2012Q4

REPORT INFORMATION
  Report Type: 
  Country: US (occurrence: US)
  Receive Date: 20121218
  Receipt Date: 20121218
  Transmission Date: 20130627
  Serious: Yes (Life-Threatening, Other)
  Sender: FDA-Public Use
  Company Number: US-ASTELLAS-2012US012150

PATIENT
  Age: 64 Year
  Sex: Female

DRUGS (1)
  1. LEXISCAN [Suspect]
     Indication: PRODUCT USED FOR UNKNOWN INDICATION
     Dosage: UNK
     Route: 065
     Dates: start: 20121205, end: 20121205

REACTIONS (6)
  - Unresponsive to stimuli [Unknown]
  - Anxiety [Unknown]
  - Respiratory failure [Unknown]
  - Bradycardia [Recovered/Resolved]
  - Dyspnoea [Unknown]
  - Nausea [Unknown]
